FAERS Safety Report 8959598 (Version 1)
Quarter: 2012Q4

REPORT INFORMATION
  Report Type: 
  Country: CA (occurrence: CA)
  Receive Date: 20121212
  Receipt Date: 20121212
  Transmission Date: 20130627
  Serious: No
  Sender: FDA-Public Use
  Company Number: CA-B.I. PHARMACEUTICALS,INC./RIDGEFIELD-2012-BI-01778BP

PATIENT
  Age: 66 Year
  Sex: Female

DRUGS (1)
  1. MIRAPEX [Suspect]
     Indication: PARKINSON^S DISEASE
     Dates: start: 20030907

REACTIONS (5)
  - Hallucination [Unknown]
  - Somnambulism [Unknown]
  - Fall [Unknown]
  - Joint dislocation [Unknown]
  - Psychotic behaviour [Unknown]
